FAERS Safety Report 6640472-5 (Version None)
Quarter: 2010Q1

REPORT INFORMATION
  Report Type: 
  Country: None (occurrence: None)
  Receive Date: 20100318
  Receipt Date: 20100305
  Transmission Date: 20100710
  Serious: Yes (Hospitalization)
  Sender: FDA-Public Use
  Company Number: FR-PFIZER INC-2010028703

PATIENT
  Age: 43 Year
  Sex: Male

DRUGS (4)
  1. XANAX [Suspect]
     Indication: ANXIETY
     Dosage: 1 DF, 2X/DAY
     Route: 048
     Dates: start: 20090916, end: 20091107
  2. PAROXETINE [Suspect]
     Dosage: 1.5 DF, 1X/DAY
     Route: 048
     Dates: start: 20090930, end: 20091107
  3. LYSANXIA [Suspect]
     Dosage: 10 DROPS X3/DAY
     Route: 048
     Dates: start: 20091117, end: 20091202
  4. BI-PROFENID [Suspect]
     Indication: BACK PAIN
     Route: 048

REACTIONS (3)
  - CYTOLYTIC HEPATITIS [None]
  - DRUG RASH WITH EOSINOPHILIA AND SYSTEMIC SYMPTOMS [None]
  - THROMBOCYTOPENIA [None]
